FAERS Safety Report 21368882 (Version 2)
Quarter: 2022Q4

REPORT INFORMATION
  Report Type: Spontaneous
  Country: US (occurrence: US)
  Receive Date: 20220923
  Receipt Date: 20221028
  Transmission Date: 20230112
  Serious: Yes (Death, Other)
  Sender: FDA-Public Use
  Company Number: US-ALKEM LABORATORIES LIMITED-US-ALKEM-2022-09983

PATIENT
  Age: 8 Month
  Sex: Male

DRUGS (17)
  1. LINEZOLID [Interacting]
     Active Substance: LINEZOLID
     Indication: Antibiotic therapy
     Dosage: 10 MG/KG/DOSE ENTERALLY, EVERY 8 HOURS
     Route: 065
  2. METHADONE HYDROCHLORIDE [Interacting]
     Active Substance: METHADONE HYDROCHLORIDE
     Indication: Pain
     Dosage: 0.75 MG/KG/DAY
     Route: 065
  3. METHADONE HYDROCHLORIDE [Interacting]
     Active Substance: METHADONE HYDROCHLORIDE
     Indication: Agitation
     Dosage: 4 DOSES OF 1.5 MG
     Route: 065
  4. MORPHINE SULFATE [Interacting]
     Active Substance: MORPHINE SULFATE
     Indication: Pain
     Dosage: 50 MCG/KG/HR
     Route: 042
  5. MORPHINE SULFATE [Interacting]
     Active Substance: MORPHINE SULFATE
     Indication: Agitation
     Dosage: 60 MCG/KG/HR (INFUSION)
     Route: 042
  6. MORPHINE SULFATE [Interacting]
     Active Substance: MORPHINE SULFATE
     Dosage: 130 MCG/KG/HR (INFUSION)
     Route: 042
  7. MORPHINE SULFATE [Interacting]
     Active Substance: MORPHINE SULFATE
     Dosage: 28 MILLIGRAM
     Route: 042
  8. MORPHINE SULFATE [Interacting]
     Active Substance: MORPHINE SULFATE
     Dosage: TEN 60 MCG/KG/DOSES, MORPHINE BOLUSES
     Route: 042
  9. BOSENTAN [Concomitant]
     Active Substance: BOSENTAN
     Indication: Product used for unknown indication
     Dosage: UNK
     Route: 065
  10. CHOLECALCIFEROL [Concomitant]
     Active Substance: CHOLECALCIFEROL
     Indication: Product used for unknown indication
     Dosage: UNK
     Route: 065
  11. CHLOROTHIAZIDE [Concomitant]
     Active Substance: CHLOROTHIAZIDE
     Indication: Product used for unknown indication
     Dosage: UNK
     Route: 065
  12. DEXMEDETOMIDINE [Concomitant]
     Active Substance: DEXMEDETOMIDINE
     Indication: Product used for unknown indication
     Dosage: 1.2 MCG/KG/HR
     Route: 042
  13. FUROSEMIDE [Concomitant]
     Active Substance: FUROSEMIDE
     Indication: Product used for unknown indication
     Dosage: UNK
     Route: 065
  14. LANSOPRAZOLE [Concomitant]
     Active Substance: LANSOPRAZOLE
     Indication: Product used for unknown indication
     Dosage: UNK
     Route: 065
  15. LORAZEPAM [Concomitant]
     Active Substance: LORAZEPAM
     Indication: Product used for unknown indication
     Dosage: UNK
     Route: 065
  16. MELATONIN [Concomitant]
     Active Substance: MELATONIN
     Indication: Product used for unknown indication
     Dosage: UNK
     Route: 065
  17. SPIRONOLACTONE [Concomitant]
     Active Substance: SPIRONOLACTONE
     Indication: Product used for unknown indication
     Dosage: UNK
     Route: 065

REACTIONS (6)
  - Hyperpyrexia [Fatal]
  - Multiple organ dysfunction syndrome [Fatal]
  - Serotonin syndrome [Fatal]
  - Muscle rigidity [Fatal]
  - Clonus [Fatal]
  - Drug interaction [Fatal]
